FAERS Safety Report 15548954 (Version 1)
Quarter: 2018Q4

REPORT INFORMATION
  Report Type: Spontaneous
  Country: US (occurrence: US)
  Receive Date: 20181025
  Receipt Date: 20181025
  Transmission Date: 20190205
  Serious: Yes (Hospitalization, Other)
  Sender: FDA-Public Use
  Company Number: US-BEH-2018096009

PATIENT
  Age: 45 Year
  Sex: Female

DRUGS (3)
  1. ELIQUIS [Concomitant]
     Active Substance: APIXABAN
  2. HIZENTRA [Suspect]
     Active Substance: HUMAN IMMUNOGLOBULIN G
     Indication: DERMATOMYOSITIS
     Dosage: 50 G, ^OVER 2-4 DAYS^, QW
     Route: 058
     Dates: start: 20180522, end: 20180524
  3. LISINOPRIL. [Concomitant]
     Active Substance: LISINOPRIL

REACTIONS (3)
  - Swelling [Unknown]
  - Jugular vein thrombosis [Unknown]
  - Neck pain [Unknown]

NARRATIVE: CASE EVENT DATE: 20180531
